FAERS Safety Report 23931351 (Version 1)
Quarter: 2024Q2

REPORT INFORMATION
  Report Type: Report from Study
  Country: GB (occurrence: GB)
  Receive Date: 20240603
  Receipt Date: 20240603
  Transmission Date: 20240716
  Serious: Yes (Other)
  Sender: FDA-Public Use
  Company Number: GB-SANDOZ-SDZ2024GB042091

PATIENT
  Sex: Male

DRUGS (1)
  1. HYRIMOZ [Suspect]
     Active Substance: ADALIMUMAB-ADAZ
     Indication: Hidradenitis
     Dosage: 40 MG,EW
     Route: 058
     Dates: start: 20240229

REACTIONS (4)
  - Colitis [Unknown]
  - Lower respiratory tract infection [Unknown]
  - Lymphadenopathy [Unknown]
  - Injection site reaction [Unknown]
